FAERS Safety Report 16390775 (Version 1)
Quarter: 2019Q2

REPORT INFORMATION
  Report Type: Spontaneous
  Country: US (occurrence: US)
  Receive Date: 20190604
  Receipt Date: 20190604
  Transmission Date: 20190711
  Serious: Yes (Other)
  Sender: FDA-Public Use
  Company Number: US-PFIZER INC-2019232542

PATIENT
  Sex: Female

DRUGS (1)
  1. LEVOXYL [Suspect]
     Active Substance: LEVOTHYROXINE SODIUM
     Dosage: UNK
     Dates: start: 2015

REACTIONS (5)
  - Dyspnoea [Unknown]
  - Feeling cold [Unknown]
  - Supraventricular tachycardia [Unknown]
  - Hypotension [Unknown]
  - Anaphylactoid reaction [Unknown]
